FAERS Safety Report 6022856-1 (Version None)
Quarter: 2008Q4

REPORT INFORMATION
  Report Type: 
  Country: None (occurrence: None)
  Receive Date: 20081230
  Receipt Date: 20081126
  Transmission Date: 20090506
  Serious: No
  Sender: FDA-Public Use
  Company Number: US-ABBOTT-08P-163-0490148-00

PATIENT
  Sex: Female
  Weight: 24.062 kg

DRUGS (1)
  1. OMNICEF [Suspect]
     Indication: EAR INFECTION
     Dates: start: 20081125

REACTIONS (3)
  - ACNE [None]
  - ERYTHEMA [None]
  - RASH [None]
